FAERS Safety Report 15375032 (Version 1)
Quarter: 2018Q3

REPORT INFORMATION
  Report Type: Spontaneous
  Country: US (occurrence: US)
  Receive Date: 20180912
  Receipt Date: 20180912
  Transmission Date: 20181010
  Serious: No
  Sender: FDA-Public Use
  Company Number: US-PFIZER INC-2018365029

PATIENT
  Age: 68 Year
  Sex: Female

DRUGS (1)
  1. NICOTROL [Suspect]
     Active Substance: NICOTINE
     Indication: TOBACCO ABUSE
     Dosage: UNK
     Route: 048

REACTIONS (2)
  - Abdominal discomfort [Unknown]
  - Vomiting [Unknown]
